FAERS Safety Report 25471880 (Version 1)
Quarter: 2025Q2

REPORT INFORMATION
  Report Type: Spontaneous
  Country: SE (occurrence: SE)
  Receive Date: 20250624
  Receipt Date: 20250624
  Transmission Date: 20250717
  Serious: Yes (Life-Threatening, Other)
  Sender: BAXTER
  Company Number: None

PATIENT
  Age: 80 Year
  Sex: Male

DRUGS (9)
  1. PROPOFOL [Suspect]
     Active Substance: PROPOFOL
     Indication: Akathisia
     Route: 042
     Dates: start: 20240823
  2. PROPOFOL [Suspect]
     Active Substance: PROPOFOL
     Indication: Confusional state
  3. PROPOFOL [Suspect]
     Active Substance: PROPOFOL
     Indication: Agitation
  4. ACETAMINOPHEN [Suspect]
     Active Substance: ACETAMINOPHEN
     Route: 065
     Dates: start: 20240822
  5. DEXTROSE\POTASSIUM CHLORIDE\SODIUM CHLORIDE [Suspect]
     Active Substance: DEXTROSE\POTASSIUM CHLORIDE\SODIUM CHLORIDE
     Route: 065
     Dates: start: 20240822
  6. Morphine tartrate trihydrate [Concomitant]
     Route: 065
  7. ZINACEF [Concomitant]
     Active Substance: CEFUROXIME SODIUM
     Route: 065
     Dates: start: 20240822
  8. FRAGMIN [Concomitant]
     Active Substance: DALTEPARIN SODIUM
     Route: 065
     Dates: start: 20240822
  9. HALDOL [Concomitant]
     Active Substance: HALOPERIDOL
     Route: 042
     Dates: start: 20240823

REACTIONS (5)
  - Respiratory arrest [Recovered/Resolved]
  - Cyanosis [Recovered/Resolved]
  - Apnoea [Recovered/Resolved]
  - Prescribed overdose [Recovered/Resolved]
  - Accidental overdose [Recovered/Resolved]

NARRATIVE: CASE EVENT DATE: 20240823
